FAERS Safety Report 7777495-9 (Version None)
Quarter: 2011Q3

REPORT INFORMATION
  Report Type: 
  Country: None (occurrence: None)
  Receive Date: 20110926
  Receipt Date: 20110915
  Transmission Date: 20111222
  Serious: Yes (Life-Threatening, Hospitalization, Other)
  Sender: FDA-Public Use
  Company Number: NO-TEVA-300231ISR

PATIENT
  Sex: Male

DRUGS (6)
  1. ASPIRIN [Concomitant]
     Indication: CARDIOVASCULAR DISORDER
     Route: 048
     Dates: start: 20090201
  2. TRABECTEDIN [Interacting]
     Indication: LIPOSARCOMA
     Route: 042
     Dates: start: 20110801, end: 20110802
  3. ZOCOR [Concomitant]
     Indication: CARDIOVASCULAR DISORDER
     Route: 048
     Dates: start: 20090201
  4. SIMVASTATIN [Suspect]
     Indication: PRODUCT USED FOR UNKNOWN INDICATION
     Dosage: DOSAGE FORM: UNSPECIFIED
     Route: 065
  5. RAMIPRIL [Concomitant]
     Indication: CARDIOVASCULAR DISORDER
     Route: 048
     Dates: start: 20090201
  6. METOPROLOL TARTRATE [Concomitant]
     Indication: CARDIOVASCULAR DISORDER
     Route: 048
     Dates: start: 20090201

REACTIONS (8)
  - BONE MARROW FAILURE [None]
  - RHABDOMYOLYSIS [None]
  - PLEURAL EFFUSION [None]
  - RENAL FAILURE [None]
  - DRUG INTERACTION [None]
  - PANCYTOPENIA [None]
  - LIVER FUNCTION TEST ABNORMAL [None]
  - ASCITES [None]
